FAERS Safety Report 8791097 (Version 4)
Quarter: 2013Q1

REPORT INFORMATION
  Report Type: Spontaneous
  Country: US (occurrence: None)
  Receive Date: 20120907
  Receipt Date: 20130204
  Transmission Date: 20140127
  Serious: Yes (Life-Threatening, Hospitalization, Other)
  Sender: FDA-Public Use
  Company Number: ADR-2012-01640

PATIENT
  Sex: Male

DRUGS (2)
  1. BACLOFEN INTRATHECAL (BACLOFEN INJECTION) [Suspect]
     Indication: PAIN
  2. BACLOFEN INTRATHECAL (BACLOFEN INJECTION) [Suspect]
     Indication: PAIN

REACTIONS (11)
  - Respiratory failure [None]
  - Incorrect dose administered by device [None]
  - Overdose [None]
  - Hyperhidrosis [None]
  - Vomiting [None]
  - Device malfunction [None]
  - Skin ulcer [None]
  - Scar [None]
  - Weight decreased [None]
  - Psychological trauma [None]
  - Device leakage [None]
